FAERS Safety Report 5494826-3 (Version None)
Quarter: 2007Q4

REPORT INFORMATION
  Report Type: 
  Country: None (occurrence: None)
  Receive Date: 20071024
  Receipt Date: 20071015
  Transmission Date: 20080405
  Serious: Yes (Death, Life-Threatening, Hospitalization, Disabling)
  Sender: FDA-Public Use
  Company Number: CZ-JNJFOC-20071003754

PATIENT
  Sex: Female

DRUGS (1)
  1. INFLIXIMAB [Suspect]
     Indication: CROHN'S DISEASE
     Route: 042

REACTIONS (1)
  - EMBOLISM [None]
